FAERS Safety Report 14301808 (Version 1)
Quarter: 2017Q4

REPORT INFORMATION
  Report Type: Spontaneous
  Country: US (occurrence: US)
  Receive Date: 20171219
  Receipt Date: 20171219
  Transmission Date: 20180321
  Serious: No
  Sender: FDA-Public Use
  Company Number: US-SUPERNUS PHARMACEUTICALS, INC.-2017SUP00134

PATIENT
  Age: 60 Year
  Sex: Male
  Weight: 87.75 kg

DRUGS (16)
  1. OXTELLAR XR [Suspect]
     Active Substance: OXCARBAZEPINE
     Indication: EPILEPSY
     Dosage: 150 MG, 1X/DAY
     Route: 048
     Dates: start: 20170511, end: 20170515
  2. GEMFIBROZIL. [Concomitant]
     Active Substance: GEMFIBROZIL
     Dosage: 600 MG, 2X/DAY
  3. LACTULOSE. [Concomitant]
     Active Substance: LACTULOSE
     Indication: LAXATIVE SUPPORTIVE CARE
     Dosage: 2 TBSP, 1X/DAY
  4. METFORMIN [Concomitant]
     Active Substance: METFORMIN HYDROCHLORIDE
     Indication: DIABETES MELLITUS
     Dosage: 250 MG, 2X/DAY
  5. OXTELLAR XR [Suspect]
     Active Substance: OXCARBAZEPINE
     Indication: EPILEPSY
     Dosage: 300 MG, 1X/DAY
     Route: 048
     Dates: start: 20170516, end: 20170520
  6. AMITRIPTYLINE [Concomitant]
     Active Substance: AMITRIPTYLINE
     Indication: INSOMNIA
     Dosage: 50 MG, 1X/DAY
  7. CYMBALTA [Concomitant]
     Active Substance: DULOXETINE HYDROCHLORIDE
     Indication: NEUROPATHY PERIPHERAL
     Dosage: 60 MG, 1X/DAY
  8. OXTELLAR XR [Suspect]
     Active Substance: OXCARBAZEPINE
     Indication: EPILEPSY
     Dosage: 600 MG, 1X/DAY
     Route: 048
     Dates: start: 20170521
  9. IBUPROFEN. [Concomitant]
     Active Substance: IBUPROFEN
     Indication: HEADACHE
     Dosage: 600 MG, AS NEEDED
  10. CLONAZEPAM. [Concomitant]
     Active Substance: CLONAZEPAM
     Indication: ANXIETY
     Dosage: 1 MG, 1X/DAY
  11. DOCUSATE SODIUM. [Concomitant]
     Active Substance: DOCUSATE SODIUM
     Indication: LAXATIVE SUPPORTIVE CARE
     Dosage: 100 MG, 2X/DAY
  12. ATENOLOL. [Concomitant]
     Active Substance: ATENOLOL
     Dosage: 25 MG, 1X/DAY
  13. ALLOPURINOL. [Concomitant]
     Active Substance: ALLOPURINOL
     Indication: GOUT
     Dosage: 300 MG, 1X/DAY
  14. ZETIA [Concomitant]
     Active Substance: EZETIMIBE
     Indication: BLOOD CHOLESTEROL
     Dosage: 10 MG, 1X/DAY
  15. MIRTAZAPINE. [Concomitant]
     Active Substance: MIRTAZAPINE
     Indication: INSOMNIA
     Dosage: 60 MG, UNK
  16. ASPIRIN. [Concomitant]
     Active Substance: ASPIRIN
     Dosage: 81 MG, 1X/DAY

REACTIONS (1)
  - Rales [Not Recovered/Not Resolved]

NARRATIVE: CASE EVENT DATE: 201705
